FAERS Safety Report 18979877 (Version 1)
Quarter: 2021Q1

REPORT INFORMATION
  Report Type: Spontaneous
  Country: US (occurrence: US)
  Receive Date: 20210306
  Receipt Date: 20210306
  Transmission Date: 20210420
  Serious: Yes (Other)
  Sender: FDA-Public Use
  Company Number: None

PATIENT
  Age: 64 Year
  Sex: Male
  Weight: 63 kg

DRUGS (3)
  1. RINVOQ [Suspect]
     Active Substance: UPADACITINIB
     Indication: RHEUMATOID ARTHRITIS
     Route: 048
     Dates: start: 20200629, end: 20210227
  2. PREDNISONE 1 MG 2 TABLETS ONCE A DAY [Concomitant]
  3. PLAQUENIL 200 MG TWICE A DAY [Concomitant]

REACTIONS (2)
  - Localised infection [None]
  - Staphylococcal infection [None]

NARRATIVE: CASE EVENT DATE: 20210219
